FAERS Safety Report 5309683-5 (Version None)
Quarter: 2007Q2

REPORT INFORMATION
  Report Type: 
  Country: None (occurrence: None)
  Receive Date: 20070427
  Receipt Date: 20061214
  Transmission Date: 20071010
  Serious: No
  Sender: FDA-Public Use
  Company Number: US-GLAXOSMITHKLINE-A0631635A

PATIENT
  Age: 32 Year
  Sex: Female

DRUGS (4)
  1. DEXEDRINE [Suspect]
     Dosage: 5MG UNKNOWN
     Route: 048
     Dates: start: 20030101
  2. DEXEDRINE [Suspect]
  3. PROZAC [Concomitant]
  4. XANAX [Concomitant]

REACTIONS (5)
  - DRUG INEFFECTIVE [None]
  - MENTAL IMPAIRMENT [None]
  - PERFORMANCE STATUS DECREASED [None]
  - SOMNOLENCE [None]
  - THINKING ABNORMAL [None]
